FAERS Safety Report 7931392-4 (Version None)
Quarter: 2011Q4

REPORT INFORMATION
  Report Type: 
  Country: None (occurrence: None)
  Receive Date: 20111121
  Receipt Date: 20111114
  Transmission Date: 20120403
  Serious: Yes (Other)
  Sender: FDA-Public Use
  Company Number: IT-CEPHALON-2011005845

PATIENT
  Sex: Male

DRUGS (7)
  1. FENTANYL CITRATE [Suspect]
     Indication: PAIN
     Route: 002
     Dates: start: 20110216, end: 20111018
  2. OXCARBAZEPINE [Concomitant]
  3. NORTRIPTYLINE HCL [Concomitant]
     Indication: PAIN
  4. METADONE [Concomitant]
  5. LANSOPRAZOLE [Concomitant]
  6. ACTIQ [Suspect]
     Route: 002
  7. FENTANYL CITRATE [Suspect]
     Route: 002
     Dates: start: 20110216, end: 20111018

REACTIONS (7)
  - DRUG PRESCRIBING ERROR [None]
  - DIZZINESS [None]
  - GINGIVAL EROSION [None]
  - TONGUE INJURY [None]
  - GINGIVAL BLEEDING [None]
  - GINGIVAL ULCERATION [None]
  - NAUSEA [None]
